FAERS Safety Report 7179872-6 (Version None)
Quarter: 2010Q4

REPORT INFORMATION
  Report Type: 
  Country: None (occurrence: None)
  Receive Date: 20101221
  Receipt Date: 20101213
  Transmission Date: 20110411
  Serious: Yes (Life-Threatening, Hospitalization)
  Sender: FDA-Public Use
  Company Number: DE-JNJFOC-20101205725

PATIENT
  Age: 82 Year
  Sex: Female
  Weight: 93 kg

DRUGS (4)
  1. IBUPROFEN [Suspect]
     Indication: CONTUSION
     Dosage: 600MG TWICE DAILY AS NEEDED
     Route: 048
  2. IBUPROFEN [Suspect]
     Route: 048
  3. NOVODIGAL [Suspect]
     Indication: PRODUCT USED FOR UNKNOWN INDICATION
     Route: 048
  4. ATACAND [Suspect]
     Indication: PRODUCT USED FOR UNKNOWN INDICATION
     Route: 048

REACTIONS (7)
  - BRADYCARDIA [None]
  - DECREASED APPETITE [None]
  - DEHYDRATION [None]
  - FLUID INTAKE REDUCED [None]
  - HYPERKALAEMIA [None]
  - RENAL FAILURE ACUTE [None]
  - THERAPEUTIC AGENT TOXICITY [None]
